FAERS Safety Report 8544116-7 (Version None)
Quarter: 2012Q3

REPORT INFORMATION
  Report Type: 
  Country: None (occurrence: None)
  Receive Date: 20120727
  Receipt Date: 20120723
  Transmission Date: 20120928
  Serious: Yes (Other)
  Sender: FDA-Public Use
  Company Number: AU-PFIZER INC-2012160499

PATIENT
  Age: 28 Year
  Sex: Female

DRUGS (3)
  1. EFFEXOR XR [Suspect]
     Indication: MAJOR DEPRESSION
     Dosage: 150 MG, UNK
     Route: 048
  2. EFFEXOR XR [Suspect]
     Indication: ANXIETY
     Dosage: 450 MG, UNK
     Route: 048
     Dates: end: 20120101
  3. EFFEXOR XR [Suspect]
     Indication: DEPRESSION

REACTIONS (10)
  - INSOMNIA [None]
  - INFLUENZA LIKE ILLNESS [None]
  - FEELING ABNORMAL [None]
  - LIBIDO DECREASED [None]
  - DIZZINESS [None]
  - NAUSEA [None]
  - EYE IRRITATION [None]
  - ANORGASMIA [None]
  - MIGRAINE [None]
  - HYPERHIDROSIS [None]
